FAERS Safety Report 9374777 (Version 1)
Quarter: 2013Q2

REPORT INFORMATION
  Report Type: Spontaneous
  Country: FR (occurrence: FR)
  Receive Date: 20130628
  Receipt Date: 20130628
  Transmission Date: 20140414
  Serious: Yes (Hospitalization)
  Sender: FDA-Public Use
  Company Number: FR-009507513-1306FRA011233

PATIENT
  Age: 98 Year
  Sex: Female

DRUGS (2)
  1. FOSAVANCE [Suspect]
     Dosage: 1 DF, QW
     Route: 048
     Dates: start: 20080602, end: 20080910
  2. RIVOTRIL [Concomitant]
     Dosage: UNK
     Dates: start: 20080626, end: 20080814

REACTIONS (2)
  - Eosinophil count increased [Recovered/Resolved]
  - Rash generalised [Recovered/Resolved]
